FAERS Safety Report 9162277 (Version 2)
Quarter: 2013Q1

REPORT INFORMATION
  Report Type: Spontaneous
  Country: GR (occurrence: GR)
  Receive Date: 20130314
  Receipt Date: 20130321
  Transmission Date: 20140127
  Serious: Yes (Other)
  Sender: FDA-Public Use
  Company Number: PHHY2013GR024744

PATIENT
  Age: 49 Year
  Sex: Male

DRUGS (1)
  1. GLIVEC [Suspect]
     Indication: CHRONIC MYELOID LEUKAEMIA
     Dosage: 400 MG,
     Dates: end: 201206

REACTIONS (2)
  - Tuberculosis [Recovering/Resolving]
  - Cough [Unknown]
